FAERS Safety Report 17198654 (Version 1)
Quarter: 2019Q4

REPORT INFORMATION
  Report Type: Report from Study
  Country: US (occurrence: US)
  Receive Date: 20191225
  Receipt Date: 20191225
  Transmission Date: 20200122
  Serious: Yes (Other)
  Sender: FDA-Public Use
  Company Number: US-ROCHE-2456991

PATIENT
  Age: 38 Year
  Sex: Female
  Weight: 81.27 kg

DRUGS (3)
  1. OCREVUS [Suspect]
     Active Substance: OCRELIZUMAB
     Route: 065
     Dates: start: 20181106
  2. OCREVUS [Suspect]
     Active Substance: OCRELIZUMAB
     Indication: MULTIPLE SCLEROSIS
     Dosage: PREVIOUS DATE OF TREATMENT: 06/MAY/2019
     Route: 065
     Dates: start: 20181022
  3. METHYLPREDNISOLONE. [Concomitant]
     Active Substance: METHYLPREDNISOLONE
     Dosage: PRE-TREATMENT TO LAST OCREVUS INFUSION
     Route: 065

REACTIONS (7)
  - Urinary tract infection [Unknown]
  - Cystitis [Unknown]
  - Musculoskeletal pain [Unknown]
  - Pain in extremity [Recovered/Resolved]
  - Bone pain [Unknown]
  - Haemorrhage [Unknown]
  - Back pain [Unknown]

NARRATIVE: CASE EVENT DATE: 20191125
